FAERS Safety Report 9353149 (Version 1)
Quarter: 2013Q2

REPORT INFORMATION
  Report Type: Spontaneous
  Country: US (occurrence: None)
  Receive Date: 20130612
  Receipt Date: 20130612
  Transmission Date: 20140414
  Serious: Yes (Other)
  Sender: FDA-Public Use
  Company Number: 2013SA057228

PATIENT
  Age: 24 Year
  Sex: Male

DRUGS (1)
  1. ICY HOT [Suspect]
     Indication: MUSCULOSKELETAL DISCOMFORT
     Dates: start: 20130604, end: 20130604

REACTIONS (3)
  - Chemical injury [None]
  - Pain [None]
  - Feeling hot [None]
